FAERS Safety Report 6768445-2 (Version None)
Quarter: 2010Q2

REPORT INFORMATION
  Report Type: 
  Country: None (occurrence: None)
  Receive Date: 20100614
  Receipt Date: 20100608
  Transmission Date: 20101027
  Serious: Yes (Hospitalization, Disabling, Other)
  Sender: FDA-Public Use
  Company Number: DE-BAYER-201022901GPV

PATIENT
  Age: 48 Year
  Sex: Female
  Weight: 65 kg

DRUGS (5)
  1. AVELOX [Suspect]
     Indication: WOUND INFECTION
     Dosage: TOTAL DAILY DOSE: 400 MG  UNIT DOSE: 400 MG
     Route: 048
     Dates: start: 20080211, end: 20080214
  2. CIPRO [Suspect]
     Indication: WOUND INFECTION
     Route: 048
     Dates: start: 20080206, end: 20080201
  3. TARGIN [Concomitant]
     Dosage: AS USED: 5/10 MG
     Route: 048
     Dates: start: 20080213, end: 20080214
  4. IBUPROFEN [Concomitant]
     Dosage: TOTAL DAILY DOSE: 1800 MG  UNIT DOSE: 600 MG
     Dates: start: 20080213, end: 20080214
  5. FRAXIPARIN [Concomitant]
     Dosage: TOTAL DAILY DOSE: 2850 IU
     Route: 058

REACTIONS (2)
  - FINGER AMPUTATION [None]
  - WOUND INFECTION [None]
